FAERS Safety Report 4904717-1 (Version None)
Quarter: 2006Q1

REPORT INFORMATION
  Report Type: 
  Country: None (occurrence: None)
  Receive Date: 20060208
  Receipt Date: 20060127
  Transmission Date: 20060701
  Serious: Yes (Hospitalization)
  Sender: FDA-Public Use
  Company Number: CA-ROCHE-434222

PATIENT
  Age: 81 Year
  Sex: Female
  Weight: 56 kg

DRUGS (14)
  1. DEMADEX [Suspect]
     Indication: CARDIAC FAILURE
     Dosage: OTHER INDICATION: HYPERTENSION
     Route: 048
     Dates: start: 19970612
  2. DEMADEX [Suspect]
     Route: 048
  3. LASIX [Suspect]
     Indication: CARDIAC FAILURE ACUTE
     Route: 042
     Dates: start: 20051215, end: 20051215
  4. COZAAR [Concomitant]
     Route: 048
     Dates: start: 20010701
  5. IMDUR [Concomitant]
     Route: 048
  6. LOPRESSOR SR [Concomitant]
     Route: 048
  7. ACETYLSALICYLIC ACID SRT [Concomitant]
     Route: 048
  8. SYNTHROID [Concomitant]
     Indication: HYPOTHYROIDISM
     Route: 048
  9. ALLOPURINOL [Concomitant]
     Indication: GOUT
     Route: 048
  10. PRAVACHOL [Concomitant]
     Route: 048
  11. PANTOPRAZOLE SODIUM [Concomitant]
     Route: 048
  12. MIACALCIN [Concomitant]
     Dosage: ROUTE: NASAL SPRAY
     Route: 050
  13. VITAMINE D [Concomitant]
     Route: 048
  14. VITAMIN B6 [Concomitant]

REACTIONS (11)
  - ANAEMIA [None]
  - BLOOD CREATININE INCREASED [None]
  - BLOOD URIC ACID INCREASED [None]
  - CARDIAC FAILURE [None]
  - CARDIAC FAILURE ACUTE [None]
  - DIVERTICULITIS [None]
  - LOWER GASTROINTESTINAL HAEMORRHAGE [None]
  - PROTEIN URINE PRESENT [None]
  - PRURITUS [None]
  - RED BLOOD CELLS URINE POSITIVE [None]
  - WHITE BLOOD CELLS URINE POSITIVE [None]
